FAERS Safety Report 9720406 (Version 1)
Quarter: 2013Q4

REPORT INFORMATION
  Report Type: Spontaneous
  Country: US (occurrence: US)
  Receive Date: 20131129
  Receipt Date: 20131129
  Transmission Date: 20140711
  Serious: No
  Sender: FDA-Public Use
  Company Number: US-JNJFOC-20131110087

PATIENT
  Sex: Female
  Weight: 54.43 kg

DRUGS (3)
  1. SANDOZ FENTANYL TRANSDERMAL SYSTEM [Suspect]
     Indication: PAIN
     Route: 062
     Dates: start: 2013
  2. UNSPECIFIED FENTANYL [Suspect]
     Indication: PAIN
     Route: 062
     Dates: end: 2013
  3. PERCOCET [Concomitant]
     Indication: PAIN
     Route: 065

REACTIONS (9)
  - Product packaging issue [Unknown]
  - Product quality issue [Unknown]
  - Application site pruritus [Recovered/Resolved]
  - Drug effect decreased [Not Recovered/Not Resolved]
  - Application site bruise [Not Recovered/Not Resolved]
  - Wrong technique in drug usage process [Unknown]
  - Wrong technique in drug usage process [Not Recovered/Not Resolved]
  - Product quality issue [Unknown]
  - Product packaging issue [Unknown]
